FAERS Safety Report 20822583 (Version 1)
Quarter: 2022Q2

REPORT INFORMATION
  Report Type: Spontaneous
  Country: US (occurrence: US)
  Receive Date: 20220512
  Receipt Date: 20220512
  Transmission Date: 20220720
  Serious: No
  Sender: FDA-Public Use
  Company Number: US-BRISTOL-MYERS SQUIBB COMPANY-2022-023305

PATIENT
  Age: 57 Year
  Sex: Female

DRUGS (1)
  1. REVLIMID [Suspect]
     Active Substance: LENALIDOMIDE
     Indication: Plasma cell myeloma
     Route: 048
     Dates: start: 20211227

REACTIONS (6)
  - Illness [Unknown]
  - Nausea [Unknown]
  - Dizziness [Unknown]
  - Abdominal pain upper [Unknown]
  - Bowel movement irregularity [Unknown]
  - Headache [Unknown]
